FAERS Safety Report 9691563 (Version 1)
Quarter: 2013Q4

REPORT INFORMATION
  Report Type: Report from Study
  Country: GB (occurrence: GB)
  Receive Date: 20131115
  Receipt Date: 20131115
  Transmission Date: 20140711
  Serious: Yes (Hospitalization)
  Sender: FDA-Public Use
  Company Number: PHHY2013GB129459

PATIENT
  Age: 38 Year
  Sex: Female
  Weight: 68 kg

DRUGS (12)
  1. EPIRUBICIN [Suspect]
     Indication: BREAST CANCER
     Dosage: 190 MG (LAST DOSE PRIORTO SAE)
     Route: 042
     Dates: start: 20130514, end: 20130625
  2. 5-FLUOROURACIL [Suspect]
     Indication: BREAST CANCER
     Dosage: 900 MG
     Route: 042
     Dates: start: 20130514, end: 20130625
  3. DOCETAXEL [Suspect]
     Indication: BREAST CANCER
     Dosage: 190 MG, TIW
     Route: 042
     Dates: start: 20130716
  4. CYCLOPHOSPHAMIDE [Suspect]
     Indication: BREAST CANCER
     Dosage: 900 MG (LAST DOSE PRIOR TO SAE)
     Route: 042
     Dates: start: 20130514, end: 20130625
  5. HERCEPTIN [Suspect]
     Indication: BREAST CANCER
     Dosage: 546 MG, TIW
     Route: 042
     Dates: start: 20130716
  6. ONDANSETRON [Concomitant]
     Dates: start: 20130514
  7. DOMPERIDONE [Concomitant]
     Dates: start: 20130514
  8. DOMPERIDONE [Concomitant]
     Dates: start: 20130715
  9. DEXAMETHASONE [Concomitant]
     Dates: start: 20130514
  10. DEXAMETHASONE [Concomitant]
     Dates: start: 20130715, end: 20130717
  11. PEGFILGRASTIM [Concomitant]
     Dates: start: 20130515
  12. PARACETAMOL [Concomitant]
     Dates: start: 20130717

REACTIONS (3)
  - Vomiting [Recovered/Resolved]
  - Fatigue [Recovered/Resolved]
  - Neutropenia [Recovered/Resolved]
